FAERS Safety Report 9211998 (Version 1)
Quarter: 2013Q2

REPORT INFORMATION
  Report Type: Spontaneous
  Country: US (occurrence: US)
  Receive Date: 20130404
  Receipt Date: 20130404
  Transmission Date: 20140414
  Serious: No
  Sender: FDA-Public Use
  Company Number: US-AMGEN-USASP2013015788

PATIENT
  Age: 9 Year
  Sex: Male
  Weight: 46.2 kg

DRUGS (8)
  1. ENBREL [Suspect]
     Indication: JUVENILE IDIOPATHIC ARTHRITIS
     Dosage: 0.7 ML, 2 TIMES/WK
     Route: 058
     Dates: start: 20130205
  2. ENBREL [Suspect]
     Indication: PSORIATIC ARTHROPATHY
  3. ENBREL [Suspect]
     Indication: PSORIASIS
  4. METHOTREXATE [Concomitant]
     Indication: JUVENILE IDIOPATHIC ARTHRITIS
     Dosage: 10 MG, QWK
     Route: 048
     Dates: start: 201209
  5. NAPROXEN [Concomitant]
     Indication: JUVENILE IDIOPATHIC ARTHRITIS
     Dosage: 250 MG, BID
     Route: 048
  6. FOLIC ACID [Concomitant]
     Dosage: 1 MG, QD
     Route: 048
  7. ZANTAC [Concomitant]
     Indication: ABDOMINAL DISCOMFORT
     Dosage: 75 MG, BID
     Route: 048
  8. CELEXA                             /00582602/ [Concomitant]
     Dosage: UNK
     Route: 048

REACTIONS (8)
  - Hypoaesthesia [Recovered/Resolved]
  - Pyrexia [Recovered/Resolved]
  - Nausea [Not Recovered/Not Resolved]
  - Dizziness [Not Recovered/Not Resolved]
  - Pain [Not Recovered/Not Resolved]
  - Arthralgia [Not Recovered/Not Resolved]
  - Back pain [Not Recovered/Not Resolved]
  - Paraesthesia [Recovered/Resolved]
